FAERS Safety Report 5725069-3 (Version None)
Quarter: 2008Q2

REPORT INFORMATION
  Report Type: 
  Country: None (occurrence: None)
  Receive Date: 20080429
  Receipt Date: 20080414
  Transmission Date: 20081010
  Serious: Yes (Other)
  Sender: FDA-Public Use
  Company Number: 2008S1006171

PATIENT
  Age: 64 Year
  Sex: Male

DRUGS (6)
  1. ENDEP [Suspect]
     Indication: DEPRESSION
     Dosage: 50 MG; DAILY; ORAL
     Route: 048
     Dates: start: 20080404, end: 20080411
  2. METFORMIN HCL [Concomitant]
  3. PREDNISONE TAB [Concomitant]
  4. ZOCOR [Concomitant]
  5. PANTOPRAZOLE SODIUM [Concomitant]
  6. MYOCRISIN [Concomitant]

REACTIONS (12)
  - ANOREXIA [None]
  - CHILLS [None]
  - DRY MOUTH [None]
  - GAIT DISTURBANCE [None]
  - INFLUENZA [None]
  - MYALGIA [None]
  - NAUSEA [None]
  - PHARYNGOLARYNGEAL PAIN [None]
  - PYREXIA [None]
  - SOMNOLENCE [None]
  - TACHYCARDIA [None]
  - TREMOR [None]
